FAERS Safety Report 14839132 (Version 1)
Quarter: 2018Q2

REPORT INFORMATION
  Report Type: Spontaneous
  Country: FR (occurrence: FR)
  Receive Date: 20180502
  Receipt Date: 20180502
  Transmission Date: 20180711
  Serious: Yes (Hospitalization)
  Sender: FDA-Public Use
  Company Number: FR-PFIZER INC-2018171136

PATIENT
  Age: 19 Year
  Sex: Male

DRUGS (4)
  1. METHYLAMPHETAMINE [Suspect]
     Active Substance: METHAMPHETAMINE
     Dosage: UNK
     Dates: start: 20180312, end: 20180312
  2. LYRICA [Suspect]
     Active Substance: PREGABALIN
     Dosage: UNK
     Route: 048
  3. COCAINE [Suspect]
     Active Substance: COCAINE
     Dosage: UNK
     Route: 055
     Dates: start: 20180312, end: 20180312
  4. ALCOHOL. [Suspect]
     Active Substance: ALCOHOL
     Dosage: UNK
     Route: 048
     Dates: start: 20180312, end: 20180312

REACTIONS (3)
  - Somnolence [Recovered/Resolved]
  - Drug dependence [Not Recovered/Not Resolved]
  - Intentional overdose [Recovered/Resolved]
